FAERS Safety Report 20883062 (Version 1)
Quarter: 2022Q2

REPORT INFORMATION
  Report Type: Spontaneous
  Country: US (occurrence: US)
  Receive Date: 20220527
  Receipt Date: 20220527
  Transmission Date: 20220721
  Serious: Yes (Hospitalization, Other)
  Sender: FDA-Public Use
  Company Number: US-SPECGX-T202201258

PATIENT
  Age: 95 Year
  Sex: Female

DRUGS (1)
  1. HYDROMORPHONE [Suspect]
     Active Substance: HYDROMORPHONE
     Indication: Groin pain
     Dosage: UNK
     Route: 065

REACTIONS (4)
  - Urinary retention [Recovered/Resolved]
  - Constipation [Recovered/Resolved]
  - Delirium [Unknown]
  - Electrolyte imbalance [Unknown]
